FAERS Safety Report 21412968 (Version 1)
Quarter: 2022Q4

REPORT INFORMATION
  Report Type: Spontaneous
  Country: US (occurrence: US)
  Receive Date: 20221005
  Receipt Date: 20221005
  Transmission Date: 20230112
  Serious: No
  Sender: FDA-Public Use
  Company Number: US-JNJFOC-20220955746

PATIENT
  Age: 49 Year
  Sex: Female
  Weight: 113.50 kg

DRUGS (1)
  1. SPRAVATO [Suspect]
     Active Substance: ESKETAMINE
     Indication: Depression
     Route: 065
     Dates: start: 202109

REACTIONS (2)
  - Depressed mood [Unknown]
  - Drug ineffective [Unknown]
